FAERS Safety Report 19785717 (Version 1)
Quarter: 2021Q3

REPORT INFORMATION
  Report Type: Spontaneous
  Country: CA (occurrence: CA)
  Receive Date: 20210903
  Receipt Date: 20210903
  Transmission Date: 20211014
  Serious: Yes (Life-Threatening, Hospitalization)
  Sender: FDA-Public Use
  Company Number: CA-ACCORD-180168

PATIENT
  Age: 8 Year
  Sex: Male
  Weight: 42 kg

DRUGS (10)
  1. TERBINAFINE/TERBINAFINE HYDROCHLORIDE [Concomitant]
     Active Substance: TERBINAFINE HYDROCHLORIDE
  2. LINEZOLID. [Concomitant]
     Active Substance: LINEZOLID
  3. LEVAQUIN [Concomitant]
     Active Substance: LEVOFLOXACIN
  4. BESPONSA [Suspect]
     Active Substance: INOTUZUMAB OZOGAMICIN
     Indication: PRODUCT USED FOR UNKNOWN INDICATION
     Dosage: POWDER FOR SOLUTION INTRAVENOUS
  5. CASPOFUNGIN [Concomitant]
     Active Substance: CASPOFUNGIN
  6. VORICONAZOLE. [Concomitant]
     Active Substance: VORICONAZOLE
  7. METHOTREXATE. [Suspect]
     Active Substance: METHOTREXATE
     Indication: PRODUCT USED FOR UNKNOWN INDICATION
  8. PENTAMIDINE [Concomitant]
     Active Substance: PENTAMIDINE
     Dosage: 300 MG/VIAL BP
  9. SEPTRA [Concomitant]
     Active Substance: SULFAMETHOXAZOLE\TRIMETHOPRIM
     Dosage: SOLUTION INTRAVENOUS, TABLET
  10. FAMCICLOVIR. [Concomitant]
     Active Substance: FAMCICLOVIR

REACTIONS (2)
  - Febrile neutropenia [Not Recovered/Not Resolved]
  - Product administered to patient of inappropriate age [Unknown]
